FAERS Safety Report 20812203 (Version 1)
Quarter: 2022Q2

REPORT INFORMATION
  Report Type: Report from Study
  Country: FR (occurrence: FR)
  Receive Date: 20220511
  Receipt Date: 20220511
  Transmission Date: 20220720
  Serious: Yes (Other)
  Sender: FDA-Public Use
  Company Number: FR-BRISTOL-MYERS SQUIBB COMPANY-2022-037655

PATIENT
  Age: 72 Year
  Sex: Male

DRUGS (19)
  1. LENALIDOMIDE [Suspect]
     Active Substance: LENALIDOMIDE
     Indication: Plasma cell myeloma
     Route: 048
     Dates: start: 20161019, end: 20190624
  2. DARATUMUMAB [Suspect]
     Active Substance: DARATUMUMAB
     Indication: Plasma cell myeloma
     Route: 042
     Dates: start: 20161019, end: 20190604
  3. DEXAMETHASONE [Concomitant]
     Active Substance: DEXAMETHASONE
     Indication: Plasma cell myeloma
     Route: 042
     Dates: start: 20161019, end: 20170802
  4. DEXAMETHASONE [Concomitant]
     Active Substance: DEXAMETHASONE
     Dosage: CYCLE 02 DAY1
     Route: 042
     Dates: start: 20170207, end: 20180213
  5. SIMVASTATIN [Concomitant]
     Active Substance: SIMVASTATIN
     Indication: Hypercholesterolaemia
     Route: 048
  6. ENALAPRIL [Concomitant]
     Active Substance: ENALAPRIL
     Indication: Hypertension
     Route: 048
  7. SERETIDE [Concomitant]
     Active Substance: FLUTICASONE PROPIONATE\SALMETEROL XINAFOATE
     Indication: Asthma
     Dosage: 250/50 MILLIGRAM
     Route: 055
  8. NASONEX [Concomitant]
     Active Substance: MOMETASONE FUROATE
     Indication: Asthma
     Route: 045
  9. HERBALS\SAW PALMETTO [Concomitant]
     Active Substance: HERBALS\SAW PALMETTO
     Indication: Benign prostatic hyperplasia
     Route: 065
  10. VALACYCLOVIR HYDROCHLORIDE [Concomitant]
     Active Substance: VALACYCLOVIR HYDROCHLORIDE
     Indication: Antiviral prophylaxis
     Route: 048
     Dates: start: 20161019
  11. LEUCOVORIN CALCIUM [Concomitant]
     Active Substance: LEUCOVORIN CALCIUM
     Indication: Prophylaxis
     Route: 048
     Dates: start: 20161019
  12. ESOMEPRAZOLE MAGNESIUM [Concomitant]
     Active Substance: ESOMEPRAZOLE MAGNESIUM
     Indication: Prophylaxis
     Route: 048
     Dates: start: 20161019
  13. BACTRIM [Concomitant]
     Active Substance: SULFAMETHOXAZOLE\TRIMETHOPRIM
     Indication: Antibiotic prophylaxis
     Route: 048
     Dates: start: 20171018
  14. CETIRIZINE [Concomitant]
     Active Substance: CETIRIZINE HYDROCHLORIDE
     Indication: Prophylaxis
     Dosage: AS REQUIRED
     Route: 048
     Dates: start: 20171213
  15. LOVENOX [Concomitant]
     Active Substance: ENOXAPARIN SODIUM
     Indication: Deep vein thrombosis
     Route: 058
     Dates: start: 20180602
  16. ZOMETA [Concomitant]
     Active Substance: ZOLEDRONIC ACID
     Indication: Prophylaxis
     Route: 042
     Dates: start: 201805, end: 20190726
  17. BETAMETHASONE DIPROPIONATE\BETAMETHASONE SODIUM PHOSPHATE [Concomitant]
     Active Substance: BETAMETHASONE DIPROPIONATE\BETAMETHASONE SODIUM PHOSPHATE
     Indication: Chapped lips
     Route: 061
     Dates: start: 20181015
  18. POLYETHYLENE GLYCOL 4000 [Concomitant]
     Active Substance: POLYETHYLENE GLYCOL 4000
     Indication: Constipation
     Dosage: 1 SACHET (1 IN 1 D)
     Route: 048
     Dates: start: 20181120
  19. TRAMADOL [Concomitant]
     Active Substance: TRAMADOL
     Indication: Arthralgia
     Route: 048
     Dates: start: 20190409

REACTIONS (1)
  - Diffuse large B-cell lymphoma [Not Recovered/Not Resolved]

NARRATIVE: CASE EVENT DATE: 20190712
